FAERS Safety Report 13544409 (Version 1)
Quarter: 2017Q2

REPORT INFORMATION
  Report Type: Spontaneous
  Country: DE (occurrence: DE)
  Receive Date: 20170515
  Receipt Date: 20170515
  Transmission Date: 20170830
  Serious: Yes (Disabling, Other)
  Sender: FDA-Public Use
  Company Number: DE-TORRENT-00006493

PATIENT
  Age: 1 Day
  Sex: Male
  Weight: 2 kg

DRUGS (6)
  1. VIGANTOLETTEN 1000 [Concomitant]
  2. MENOGON [Concomitant]
     Active Substance: MENOTROPINS
  3. L-THYROXIN [Concomitant]
     Active Substance: LEVOTHYROXINE SODIUM
  4. SERTRALINE [Suspect]
     Active Substance: SERTRALINE HYDROCHLORIDE
  5. FOLIO FORTE [Concomitant]
     Active Substance: FOLIC ACID\VITAMINS
  6. TANTUM VERDE [Concomitant]
     Active Substance: BENZYDAMINE HYDROCHLORIDE

REACTIONS (2)
  - Foetal exposure during pregnancy [Unknown]
  - Small for dates baby [Recovered/Resolved]

NARRATIVE: CASE EVENT DATE: 20170119
